FAERS Safety Report 13726745 (Version 5)
Quarter: 2018Q4

REPORT INFORMATION
  Report Type: Spontaneous
  Country: NL (occurrence: NL)
  Receive Date: 20170706
  Receipt Date: 20181207
  Transmission Date: 20190204
  Serious: Yes (Hospitalization, Other)
  Sender: FDA-Public Use
  Company Number: NL-IPSEN BIOPHARMACEUTICALS, INC.-2017-06282

PATIENT
  Age: 66 Year
  Sex: Male
  Weight: 75 kg

DRUGS (18)
  1. LX1606 [Concomitant]
     Active Substance: TELOTRISTAT ETHYL
     Route: 048
     Dates: start: 20170711, end: 20170824
  2. INSULIN ASPART [Concomitant]
     Active Substance: INSULIN ASPART
     Indication: TYPE 2 DIABETES MELLITUS
     Route: 058
  3. LX1606 [Concomitant]
     Active Substance: TELOTRISTAT ETHYL
     Indication: CARCINOID SYNDROME
     Route: 048
     Dates: start: 20160223, end: 20170601
  4. NIFEDIPINE. [Concomitant]
     Active Substance: NIFEDIPINE
     Indication: HYPERTENSION
     Route: 048
     Dates: start: 20150701
  5. INSULIN GLARGINE [Concomitant]
     Active Substance: INSULIN GLARGINE
     Indication: TYPE 2 DIABETES MELLITUS
     Route: 058
  6. OXYCODONE [Concomitant]
     Active Substance: OXYCODONE
     Indication: BACK PAIN
     Route: 048
     Dates: start: 20160517
  7. COLECALCIFEROL [Concomitant]
     Active Substance: CHOLECALCIFEROL
     Indication: VITAMIN D DEFICIENCY
     Route: 048
     Dates: start: 20160701
  8. LISINOPRIL. [Concomitant]
     Active Substance: LISINOPRIL
     Indication: HYPERTENSION
     Route: 048
  9. PARACETAMOL [Concomitant]
     Active Substance: ACETAMINOPHEN
     Indication: HEADACHE
     Route: 048
     Dates: start: 201605
  10. LANREOTIDE [Suspect]
     Active Substance: LANREOTIDE
     Indication: CARCINOID SYNDROME
     Dosage: 120 MG
     Route: 058
     Dates: start: 20151221
  11. ALLOPURINOL. [Concomitant]
     Active Substance: ALLOPURINOL
     Indication: GOUT
     Route: 048
  12. FLUTICASON [Concomitant]
     Active Substance: FLUTICASONE
     Indication: RHINITIS PROPHYLAXIS
     Route: 045
  13. MULTIVITAMIN [Concomitant]
     Active Substance: VITAMINS
     Indication: HYPOKALAEMIA
     Route: 048
     Dates: start: 20170418
  14. THIAMINE. [Concomitant]
     Active Substance: THIAMINE
     Indication: VITAMIN D DEFICIENCY
     Route: 048
     Dates: start: 20170418
  15. CARBASALAAT CALCIUM [Concomitant]
     Indication: LATERAL MEDULLARY SYNDROME
     Route: 048
  16. DOXAZOSINE [Concomitant]
     Active Substance: DOXAZOSIN MESYLATE
     Indication: HYPERTENSION
     Route: 048
  17. OMEPRAZOL [Concomitant]
     Active Substance: OMEPRAZOLE
     Indication: GASTROOESOPHAGEAL REFLUX PROPHYLAXIS
     Route: 048
  18. CARBAMAZEPINE. [Concomitant]
     Active Substance: CARBAMAZEPINE
     Indication: LUMBOSACRAL PLEXUS INJURY
     Route: 048
     Dates: start: 20161115

REACTIONS (11)
  - Pneumonitis [Not Recovered/Not Resolved]
  - Decreased appetite [Recovered/Resolved]
  - Metastases to bone [Unknown]
  - Headache [Unknown]
  - Metastases to central nervous system [Recovered/Resolved]
  - Meningitis [Recovered/Resolved]
  - Lumbosacral plexopathy [Unknown]
  - Abdominal pain [Not Recovered/Not Resolved]
  - Back pain [Unknown]
  - Hypokalaemia [Unknown]
  - Vitamin D deficiency [Unknown]

NARRATIVE: CASE EVENT DATE: 201602
